FAERS Safety Report 4444404-X (Version None)
Quarter: 2004Q3

REPORT INFORMATION
  Report Type: 
  Country: None (occurrence: None)
  Receive Date: 20040902
  Receipt Date: 20040818
  Transmission Date: 20050211
  Serious: No
  Sender: FDA-Public Use
  Company Number: VIS10165.2001

PATIENT
  Age: 51 Year
  Sex: Female
  Weight: 58.0604 kg

DRUGS (3)
  1. VISICOL [Suspect]
     Indication: COLONOSCOPY
     Dosage: 41 G ONCE PO
     Route: 048
     Dates: start: 20040810, end: 20040810
  2. DULCOLAX [Suspect]
     Indication: COLONOSCOPY
     Dosage: 20 MG ONCE PO
     Route: 048
     Dates: start: 20040910, end: 20040810
  3. BIRTH CONTROL PILLS [Concomitant]

REACTIONS (9)
  - ANXIETY [None]
  - ASTHENIA [None]
  - BLOOD CALCIUM DECREASED [None]
  - BLOOD MAGNESIUM DECREASED [None]
  - BLOOD POTASSIUM DECREASED [None]
  - BLOOD SODIUM DECREASED [None]
  - CONSTIPATION [None]
  - DIZZINESS [None]
  - FAECAL OCCULT BLOOD POSITIVE [None]
